FAERS Safety Report 23898456 (Version 1)
Quarter: 2024Q2

REPORT INFORMATION
  Report Type: Spontaneous
  Country: US (occurrence: US)
  Receive Date: 20240525
  Receipt Date: 20240525
  Transmission Date: 20240716
  Serious: No
  Sender: FDA-Public Use
  Company Number: US-MIMS-BCONMC-3738

PATIENT

DRUGS (2)
  1. INSULIN GLARGINE [Suspect]
     Active Substance: INSULIN GLARGINE
     Indication: Type 2 diabetes mellitus
     Dosage: 15 UNITS/ML, QD
     Route: 065
     Dates: start: 2015
  2. AMOX-TR [Concomitant]
     Indication: Ear infection
     Dosage: 125 MILLIGRAM
     Route: 065

REACTIONS (1)
  - Device mechanical issue [Unknown]
